FAERS Safety Report 18098020 (Version 5)
Quarter: 2021Q1

REPORT INFORMATION
  Report Type: Spontaneous
  Country: JP (occurrence: JP)
  Receive Date: 20200731
  Receipt Date: 20210107
  Transmission Date: 20210419
  Serious: Yes (Hospitalization)
  Sender: FDA-Public Use
  Company Number: JP-TEVA-202007_00009969

PATIENT
  Age: 56 Year
  Sex: Female
  Weight: 40.4 kg

DRUGS (6)
  1. TAKEPRON CAPSULES 15 [Suspect]
     Active Substance: LANSOPRAZOLE
     Indication: HELICOBACTER INFECTION
     Dosage: 30 MILLIGRAM DAILY;
     Route: 065
  2. ESOMEPRAZOLE MAGNESIUM HYDRATE [Suspect]
     Active Substance: ESOMEPRAZOLE MAGNESIUM
     Indication: HYPERGASTRINAEMIA
  3. ESOMEPRAZOLE MAGNESIUM HYDRATE [Suspect]
     Active Substance: ESOMEPRAZOLE MAGNESIUM
     Indication: PEPTIC ULCER
     Dosage: 20 MILLIGRAM DAILY;
     Route: 065
  4. VONOPRAZAN [Suspect]
     Active Substance: VONOPRAZAN
     Indication: PEPTIC ULCER
     Dosage: 20 MILLIGRAM DAILY;
     Route: 065
  5. ESOMEPRAZOLE MAGNESIUM HYDRATE [Suspect]
     Active Substance: ESOMEPRAZOLE MAGNESIUM
     Indication: VOMITING
  6. TAKEPRON CAPSULES 15 [Suspect]
     Active Substance: LANSOPRAZOLE
     Indication: PEPTIC ULCER
     Route: 065

REACTIONS (12)
  - Dyspepsia [Recovered/Resolved]
  - Gait disturbance [Unknown]
  - Confabulation [Recovering/Resolving]
  - Wernicke-Korsakoff syndrome [Recovering/Resolving]
  - Dysaesthesia [Unknown]
  - Vomiting [Recovered/Resolved]
  - Vitamin B1 deficiency [Recovering/Resolving]
  - Metabolic acidosis [Unknown]
  - Hypergastrinaemia [Recovering/Resolving]
  - Memory impairment [Recovered/Resolved]
  - Wernicke^s encephalopathy [Recovering/Resolving]
  - Peripheral sensory neuropathy [Unknown]
